FAERS Safety Report 5606643-1 (Version None)
Quarter: 2008Q1

REPORT INFORMATION
  Report Type: 
  Country: None (occurrence: None)
  Receive Date: 20080129
  Receipt Date: 20080121
  Transmission Date: 20080703
  Serious: Yes (Hospitalization)
  Sender: FDA-Public Use
  Company Number: US-BAXTER-2008BH000643

PATIENT
  Age: 7 Day
  Sex: Male
  Weight: 3 kg

DRUGS (5)
  1. FENTANYL CITRATE [Suspect]
     Indication: SEDATION
     Dosage: DOSE UNIT:UNKNOWN
     Route: 065
     Dates: start: 20080104
  2. ANGIOMAX [Suspect]
     Indication: DRUG USE FOR UNKNOWN INDICATION
     Route: 040
     Dates: start: 20080104, end: 20080104
  3. ANGIOMAX [Suspect]
     Route: 042
     Dates: start: 20080104, end: 20080104
  4. HEPARIN [Concomitant]
     Dosage: DOSE UNIT:UNKNOWN
     Route: 065
     Dates: start: 20080104, end: 20080104
  5. ACETAMINOPHEN [Concomitant]
     Indication: DRUG USE FOR UNKNOWN INDICATION
     Dosage: DOSE UNIT:UNKNOWN
     Route: 065
     Dates: start: 20080104, end: 20080104

REACTIONS (3)
  - APNOEA [None]
  - POPLITEAL PULSE ABNORMAL [None]
  - PULSE ABSENT [None]
